FAERS Safety Report 8060463-X (Version None)
Quarter: 2012Q1

REPORT INFORMATION
  Report Type: 
  Country: None (occurrence: None)
  Receive Date: 20120120
  Receipt Date: 20120116
  Transmission Date: 20120608
  Serious: Yes (Hospitalization)
  Sender: FDA-Public Use
  Company Number: PH-GLAXOSMITHKLINE-B0776370A

PATIENT
  Age: 7 Year
  Sex: Male

DRUGS (3)
  1. STEROID [Concomitant]
     Indication: ASTHMA
     Route: 055
  2. CEFUROXIME [Suspect]
     Indication: ASTHMA
     Route: 065
     Dates: start: 20120101, end: 20120101
  3. DUAVENT [Concomitant]
     Indication: ASTHMA
     Route: 065
     Dates: start: 20120101

REACTIONS (5)
  - FLUSHING [None]
  - BRONCHOSPASM [None]
  - HEART RATE DECREASED [None]
  - CHEST PAIN [None]
  - OXYGEN SATURATION DECREASED [None]
